FAERS Safety Report 6004074-6 (Version None)
Quarter: 2008Q4

REPORT INFORMATION
  Report Type: 
  Country: None (occurrence: None)
  Receive Date: 20081216
  Receipt Date: 20081212
  Transmission Date: 20090506
  Serious: Yes (Death)
  Sender: FDA-Public Use
  Company Number: B0550497A

PATIENT
  Sex: Male

DRUGS (1)
  1. KIVEXA [Suspect]
     Indication: HIV INFECTION
     Route: 065

REACTIONS (1)
  - SUDDEN DEATH [None]
